FAERS Safety Report 16985752 (Version 1)
Quarter: 2019Q4

REPORT INFORMATION
  Report Type: Report from Study
  Country: CA (occurrence: CA)
  Receive Date: 20191101
  Receipt Date: 20191101
  Transmission Date: 20200122
  Serious: Yes (Death)
  Sender: FDA-Public Use
  Company Number: CA-PFIZER INC-2019466630

PATIENT
  Age: 70 Year
  Sex: Female

DRUGS (5)
  1. SANDOSTATIN LAR DEPOT [Suspect]
     Active Substance: OCTREOTIDE ACETATE
     Dosage: 20 MG, UNK
     Route: 030
  2. ATIVAN [Suspect]
     Active Substance: LORAZEPAM
     Dosage: UNK
  3. SANDOSTATIN [Suspect]
     Active Substance: OCTREOTIDE ACETATE
     Indication: CARCINOID SYNDROME
     Dosage: 50 UG, 3X/DAY
     Route: 058
  4. SANDOSTATIN LAR DEPOT [Suspect]
     Active Substance: OCTREOTIDE ACETATE
     Indication: CARCINOID SYNDROME
     Dosage: 30 MG, UNK
     Route: 030
  5. SANDOSTATIN LAR DEPOT [Suspect]
     Active Substance: OCTREOTIDE ACETATE
     Dosage: 30 MG, UNK
     Route: 030

REACTIONS (22)
  - Decreased appetite [Fatal]
  - Haemoglobin decreased [Fatal]
  - Pollakiuria [Fatal]
  - Sleep disorder [Fatal]
  - Chills [Fatal]
  - Constipation [Fatal]
  - Pyrexia [Fatal]
  - Sensation of foreign body [Fatal]
  - Death [Fatal]
  - Insomnia [Fatal]
  - Hot flush [Fatal]
  - Blood pressure diastolic decreased [Fatal]
  - Diarrhoea [Fatal]
  - Lymphadenopathy [Fatal]
  - Pain [Fatal]
  - Blood pressure systolic increased [Fatal]
  - Abdominal pain upper [Fatal]
  - Fatigue [Fatal]
  - Feeling jittery [Fatal]
  - Frequent bowel movements [Fatal]
  - Palpitations [Fatal]
  - Tooth abscess [Fatal]
